FAERS Safety Report 13794898 (Version 1)
Quarter: 2017Q3

REPORT INFORMATION
  Report Type: Report from Study
  Country: CO (occurrence: CO)
  Receive Date: 20170726
  Receipt Date: 20170726
  Transmission Date: 20171127
  Serious: Yes (Hospitalization, Other)
  Sender: FDA-Public Use
  Company Number: CO-ELI_LILLY_AND_COMPANY-CO201706013091

PATIENT
  Age: 62 Year
  Sex: Female

DRUGS (1)
  1. CETUXIMAB. [Suspect]
     Active Substance: CETUXIMAB
     Indication: SQUAMOUS CELL CARCINOMA OF HEAD AND NECK
     Dosage: 400 MG, WEEKLY (1/W)
     Route: 042
     Dates: start: 20170511

REACTIONS (6)
  - Dry throat [Unknown]
  - Throat lesion [Unknown]
  - Odynophagia [Unknown]
  - Dry mouth [Unknown]
  - Rash [Not Recovered/Not Resolved]
  - Dysphonia [Unknown]

NARRATIVE: CASE EVENT DATE: 2017
